FAERS Safety Report 9195007 (Version 1)
Quarter: 2013Q1

REPORT INFORMATION
  Report Type: Spontaneous
  Country: US (occurrence: US)
  Receive Date: 20130328
  Receipt Date: 20130328
  Transmission Date: 20140127
  Serious: No
  Sender: FDA-Public Use
  Company Number: US-ALLERGAN-1214423US

PATIENT
  Sex: Female

DRUGS (4)
  1. LATISSE 0.03% [Suspect]
     Indication: GROWTH OF EYELASHES
     Dosage: 2 GTT, QHS
     Route: 061
     Dates: start: 201207
  2. LATISSE 0.03% [Suspect]
     Indication: HAIR GROWTH ABNORMAL
     Dosage: 1 GTT, QHS
     Route: 061
  3. SYNTHROID [Concomitant]
     Indication: HYPOTHYROIDISM
     Dosage: 75 MG, QD
     Route: 048
  4. LIPITOR [Concomitant]
     Indication: BLOOD CHOLESTEROL INCREASED
     Dosage: 10 MG, QOD
     Route: 048

REACTIONS (6)
  - Incorrect dose administered [Unknown]
  - Wrong technique in drug usage process [Unknown]
  - Eyelid sensory disorder [Recovered/Resolved]
  - Eyelid disorder [Unknown]
  - Therapeutic response decreased [Unknown]
  - Scleral hyperaemia [Recovered/Resolved]
